FAERS Safety Report 25358193 (Version 2)
Quarter: 2025Q3

REPORT INFORMATION
  Report Type: Spontaneous
  Country: US (occurrence: US)
  Receive Date: 20250526
  Receipt Date: 20250715
  Transmission Date: 20251020
  Serious: No
  Sender: ROCHE
  Company Number: US-ROCHE-10000284438

PATIENT
  Age: 71 Year
  Sex: Female
  Weight: 108.86 kg

DRUGS (15)
  1. AVASTIN [Suspect]
     Active Substance: BEVACIZUMAB
     Indication: Diabetic retinal oedema
     Route: 031
     Dates: start: 202207
  2. LUCENTIS [Suspect]
     Active Substance: RANIBIZUMAB
     Indication: Diabetic retinal oedema
     Route: 031
     Dates: start: 2022
  3. VABYSMO [Suspect]
     Active Substance: FARICIMAB-SVOA
     Indication: Diabetic retinal oedema
     Route: 031
     Dates: start: 20221018, end: 202502
  4. VABYSMO [Suspect]
     Active Substance: FARICIMAB-SVOA
     Dosage: BOTH EYES
     Route: 031
     Dates: start: 202502
  5. VABYSMO [Suspect]
     Active Substance: FARICIMAB-SVOA
     Dosage: 6 MG/0.05 ML, 60 UNITS DRUG ADMINISTERED. ON 17-JUN-2025 LAST DOSE WAS ADMINISTERED
     Route: 050
  6. LISINOPRIL [Concomitant]
     Active Substance: LISINOPRIL
     Indication: Hypertension
     Route: 048
  7. SIMVASTATIN [Concomitant]
     Active Substance: SIMVASTATIN
     Route: 048
  8. METFORMIN [Concomitant]
     Active Substance: METFORMIN HYDROCHLORIDE
     Indication: Diabetes mellitus
     Route: 048
  9. OZEMPIC [Concomitant]
     Active Substance: SEMAGLUTIDE
     Indication: Diabetes mellitus
  10. TRESIBA [Concomitant]
     Active Substance: INSULIN DEGLUDEC
     Indication: Diabetes mellitus
     Dosage: ONE DOSE IN THE MORNING AND ONE DOSE AT NIGHT
  11. TIMOLOL [Concomitant]
     Active Substance: TIMOLOL
     Route: 047
  12. ASPIRIN [Concomitant]
     Active Substance: ASPIRIN
     Route: 048
  13. LIDOCAINE [Concomitant]
     Active Substance: LIDOCAINE
  14. PROPARACAINE [Concomitant]
     Active Substance: PROPARACAINE
  15. CHLORHEXIDINE GLUCONATE [Concomitant]
     Active Substance: CHLORHEXIDINE GLUCONATE

REACTIONS (4)
  - Off label use [Unknown]
  - Herpes zoster [Recovered/Resolved]
  - Weight decreased [Not Recovered/Not Resolved]
  - Off label use [Unknown]

NARRATIVE: CASE EVENT DATE: 20241201
